FAERS Safety Report 6145277-X (Version None)
Quarter: 2009Q2

REPORT INFORMATION
  Report Type: 
  Country: None (occurrence: None)
  Receive Date: 20090406
  Receipt Date: 20090406
  Transmission Date: 20091009
  Serious: Yes (Life-Threatening, Hospitalization)
  Sender: FDA-Public Use
  Company Number: PHHO2006ZA02788

PATIENT
  Sex: Female

DRUGS (14)
  1. CGS 20267 T30748+ [Suspect]
     Indication: BREAST CANCER
     Dosage: 2.5 MG, QD
     Route: 048
     Dates: end: 20060216
  2. PURICOS [Concomitant]
     Indication: GOUT
  3. SIMVASTATIN [Concomitant]
     Indication: HYPERCHOLESTEROLAEMIA
     Dates: start: 20051122
  4. GLICLAZIDE [Concomitant]
     Indication: DIABETES MELLITUS
     Dates: start: 20060215
  5. CALCIUM CARBONATE [Concomitant]
     Indication: OSTEOPENIA
     Dosage: UNK, UNK
     Dates: start: 20060215
  6. GLYCINE 1.5% [Concomitant]
     Indication: OSTEOPENIA
     Dates: start: 20060215
  7. VITAMIN D [Concomitant]
     Indication: OSTEOPENIA
     Dates: start: 20060215
  8. ADCO-ATENOLOL [Concomitant]
     Indication: HYPERTENSION
  9. PHARMAPRESS [Concomitant]
     Indication: HYPERTENSION
  10. ASPIRIN [Concomitant]
     Indication: HYPERTENSION
  11. ISORDIL [Concomitant]
     Indication: ANGINA PECTORIS
  12. CLOPIDOGREL [Concomitant]
     Indication: ANGINA PECTORIS
     Dates: start: 20060215
  13. PANADOL CODEINE [Concomitant]
     Indication: PAIN
     Dates: start: 20060215
  14. TAMOXIFEN CITRATE [Suspect]
     Dosage: 20 MG, QD - 2 YEARS
     Dates: start: 20021219

REACTIONS (20)
  - ANGINA PECTORIS [None]
  - AV DISSOCIATION [None]
  - BACK PAIN [None]
  - BRADYARRHYTHMIA [None]
  - CARDIOGENIC SHOCK [None]
  - CELLULITIS [None]
  - CHEST DISCOMFORT [None]
  - CORONARY ARTERY OCCLUSION [None]
  - DECREASED ACTIVITY [None]
  - DIABETES MELLITUS [None]
  - DYSPNOEA [None]
  - ELECTROCARDIOGRAM ST SEGMENT ELEVATION [None]
  - FATIGUE [None]
  - HYPOTENSION [None]
  - MYOCARDIAL INFARCTION [None]
  - MYOCARDIAL ISCHAEMIA [None]
  - NODAL RHYTHM [None]
  - SINUS ARREST [None]
  - SINUS BRADYCARDIA [None]
  - STENT PLACEMENT [None]
